FAERS Safety Report 10889225 (Version 1)
Quarter: 2015Q1

REPORT INFORMATION
  Report Type: Spontaneous
  Country: GB (occurrence: GB)
  Receive Date: 20150305
  Receipt Date: 20150305
  Transmission Date: 20150721
  Serious: Yes (Other)
  Sender: FDA-Public Use
  Company Number: GB-MYLANLABS-2015M1006706

PATIENT

DRUGS (1)
  1. CITALOPRAM [Suspect]
     Active Substance: CITALOPRAM HYDROBROMIDE
     Dosage: 10-20MG
     Route: 065

REACTIONS (11)
  - High risk sexual behaviour [Unknown]
  - Loss of employment [Unknown]
  - Amnesia [Unknown]
  - Affect lability [Unknown]
  - Somnambulism [Unknown]
  - Physical assault [Unknown]
  - Alcohol interaction [Unknown]
  - Loss of libido [Unknown]
  - Nightmare [Unknown]
  - Crying [Unknown]
  - Anger [Unknown]
